FAERS Safety Report 8174351 (Version 6)
Quarter: 2014Q1

REPORT INFORMATION
  Report Type: Spontaneous
  Country: US (occurrence: US)
  Receive Date: 20111010
  Receipt Date: 20140113
  Transmission Date: 20141002
  Serious: Yes (Death, Hospitalization)
  Sender: FDA-Public Use
  Company Number: US-GLAXOSMITHKLINE-B0753800A

PATIENT
  Age: 77 Year
  Sex: Male
  Weight: 100.5 kg

DRUGS (3)
  1. AVANDIA [Suspect]
     Indication: DIABETES MELLITUS
     Dosage: 8MG PER DAY
     Route: 048
     Dates: end: 20051118
  2. AMARYL [Concomitant]
  3. NORVASC [Concomitant]

REACTIONS (5)
  - Pneumonia [Fatal]
  - Brain stem infarction [Unknown]
  - Acute myocardial infarction [Unknown]
  - Cerebrovascular accident [Unknown]
  - Cardiac failure congestive [Unknown]
